FAERS Safety Report 13670602 (Version 1)
Quarter: 2017Q2

REPORT INFORMATION
  Report Type: Spontaneous
  Country: GB (occurrence: GB)
  Receive Date: 20170620
  Receipt Date: 20170620
  Transmission Date: 20170830
  Serious: Yes (Hospitalization, Other)
  Sender: FDA-Public Use
  Company Number: GB-PFIZER INC-2017268944

PATIENT
  Age: 94 Year
  Sex: Female
  Weight: 60 kg

DRUGS (14)
  1. ELIQUIS [Suspect]
     Active Substance: APIXABAN
     Indication: ACTINIC KERATOSIS
     Dosage: UNK
     Route: 065
     Dates: start: 20170307
  2. ATORVASTATIN [Suspect]
     Active Substance: ATORVASTATIN
     Indication: BLOOD CHOLESTEROL
     Dosage: 10 MG, 1X/DAY (NIGHT)
     Route: 065
     Dates: start: 20170302
  3. CARVEDILOL. [Concomitant]
     Active Substance: CARVEDILOL
     Dosage: 12.5 MG, 2X/DAY
     Route: 065
     Dates: start: 20170302
  4. RANITIDINE. [Concomitant]
     Active Substance: RANITIDINE
     Dosage: 150 MG, 2X/DAY (FOR ACID SUPPRESSION)
     Route: 065
     Dates: start: 20170302
  5. VISCOTEARS [Concomitant]
     Active Substance: CARBOMER
     Dosage: 1 GTT, UNK
     Route: 065
     Dates: start: 20170306
  6. NICORANDIL [Concomitant]
     Active Substance: NICORANDIL
     Dosage: 5 MG, 2X/DAY
     Route: 065
     Dates: start: 20170302
  7. SILDENAFIL. [Concomitant]
     Active Substance: SILDENAFIL
     Dosage: 25 MG, 3X/DAY
     Route: 065
     Dates: start: 20170302
  8. SPIRONOLACTONE. [Concomitant]
     Active Substance: SPIRONOLACTONE
     Dosage: ON ALTERNATE DAYS
     Route: 065
     Dates: start: 20170302
  9. CANDESARTAN. [Concomitant]
     Active Substance: CANDESARTAN
     Dosage: 2 MG, UNK
     Route: 065
  10. LEVOTHYROXINE. [Concomitant]
     Active Substance: LEVOTHYROXINE
     Indication: HYPOTHYROIDISM
     Dosage: 100 UG, 1X/DAY
     Route: 065
     Dates: start: 20170302
  11. BALNEUM PLUS /01148801/ [Concomitant]
     Dosage: AS DIRECTED
     Route: 065
     Dates: start: 20170306
  12. BUMETANIDE. [Concomitant]
     Active Substance: BUMETANIDE
     Dosage: 1 TABLET IN MORNING AND HALF TABLET LUNCH TIME
     Route: 065
     Dates: start: 20170302
  13. CANDESARTAN. [Concomitant]
     Active Substance: CANDESARTAN
     Dosage: 4 MG, UNK
     Route: 065
  14. TEMAZEPAM. [Concomitant]
     Active Substance: TEMAZEPAM
     Dosage: 5 MG, 1X/DAY (AT NIGHT)
     Route: 065
     Dates: start: 20170323

REACTIONS (2)
  - Gastric ulcer [Recovered/Resolved]
  - Product use in unapproved indication [Unknown]
